FAERS Safety Report 4494836-9 (Version None)
Quarter: 2004Q4

REPORT INFORMATION
  Report Type: 
  Country: None (occurrence: None)
  Receive Date: 20041103
  Receipt Date: 20041019
  Transmission Date: 20050328
  Serious: Yes (Other)
  Sender: FDA-Public Use
  Company Number: 2004-UK-01054UK

PATIENT
  Age: 67 Year
  Sex: Male

DRUGS (4)
  1. SPIRIVA [Suspect]
     Indication: CHRONIC OBSTRUCTIVE AIRWAYS DISEASE
     Dosage: 18 MCG (18 MCG) IH
     Route: 055
     Dates: start: 20040708, end: 20040906
  2. QVAR (BECLOMETASONE DIPROPIONATE) (NR) [Concomitant]
  3. OXIS (FORMOTEROL) (NR) [Concomitant]
  4. ASPIRIN [Concomitant]

REACTIONS (1)
  - SWOLLEN TONGUE [None]
